FAERS Safety Report 10389051 (Version 2)
Quarter: 2014Q4

REPORT INFORMATION
  Report Type: Spontaneous
  Country: US (occurrence: US)
  Receive Date: 20140816
  Receipt Date: 20141104
  Transmission Date: 20150528
  Serious: Yes (Hospitalization, Disabling, Other)
  Sender: FDA-Public Use
  Company Number: PHEH2014US016037

PATIENT
  Age: 41 Year
  Sex: Male
  Weight: 77 kg

DRUGS (6)
  1. DESMOPRESSIN [Concomitant]
     Active Substance: DESMOPRESSIN
     Indication: HYPOPITUITARISM
     Dosage: 0.1 MG, BID
     Dates: start: 2011
  2. TESTOSTERONE. [Concomitant]
     Active Substance: TESTOSTERONE
     Indication: HYPOPITUITARISM
     Dosage: UNK, (3/4CC) QW
     Route: 030
  3. SYNTHROID [Concomitant]
     Active Substance: LEVOTHYROXINE SODIUM
     Indication: HYPOPITUITARISM
     Dosage: 150 UG, QD
     Route: 048
     Dates: start: 2011
  4. RECLAST [Suspect]
     Active Substance: ZOLEDRONIC ACID
     Indication: OSTEOPENIA
     Dosage: 5 MG, ONCE IN 1 YEAR
     Route: 042
     Dates: start: 20130912
  5. CALTRATE [Concomitant]
     Active Substance: CALCIUM CARBONATE
     Indication: OSTEOPENIA
     Dosage: UNK, QD
     Route: 048
     Dates: start: 2011
  6. PREDNISONE. [Concomitant]
     Active Substance: PREDNISONE
     Indication: HYPOPITUITARISM
     Dosage: 5 MG, QD
     Route: 048
     Dates: start: 2011

REACTIONS (2)
  - Craniopharyngioma [Recovered/Resolved]
  - Benign neoplasm [Unknown]

NARRATIVE: CASE EVENT DATE: 2014
